FAERS Safety Report 6899941-5 (Version None)
Quarter: 2010Q3

REPORT INFORMATION
  Report Type: 
  Country: None (occurrence: None)
  Receive Date: 20100803
  Receipt Date: 20100729
  Transmission Date: 20110219
  Serious: Yes (Death, Life-Threatening, Hospitalization)
  Sender: FDA-Public Use
  Company Number: DE-BRISTOL-MYERS SQUIBB COMPANY-15195480

PATIENT
  Age: 67 Year
  Sex: Female

DRUGS (10)
  1. CISPLATIN [Suspect]
     Indication: NON-SMALL CELL LUNG CANCER
     Dosage: LAST INF ON 1JUL10.
     Route: 042
     Dates: start: 20100610
  2. PEMETREXED DISODIUM [Suspect]
     Indication: NON-SMALL CELL LUNG CANCER
     Dosage: LAST INF ON 1JUL10.
     Route: 042
     Dates: start: 20100610
  3. BEVACIZUMAB [Suspect]
     Indication: NON-SMALL CELL LUNG CANCER
     Dosage: LAST INF ON 1JUL10.
     Route: 042
     Dates: start: 20100610
  4. MORPHINE [Concomitant]
     Indication: PAIN
     Dates: start: 20100614
  5. METOCLOPRAMIDE HCL [Concomitant]
     Indication: NAUSEA
     Dates: start: 20100611
  6. LORAZEPAM [Concomitant]
     Indication: PAIN
     Dates: start: 20100613
  7. SODIUM PICOSULFATE [Concomitant]
     Indication: CONSTIPATION
     Dates: start: 20100629
  8. FOLIC ACID [Concomitant]
     Dates: start: 20100610, end: 20100707
  9. VITAMIN B-12 [Concomitant]
     Dates: start: 20100610, end: 20100610
  10. DEXAMETHASONE [Concomitant]
     Dates: start: 20100630, end: 20100702

REACTIONS (3)
  - COMA [None]
  - DEHYDRATION [None]
  - PNEUMONIA ASPIRATION [None]
